FAERS Safety Report 20057902 (Version 2)
Quarter: 2021Q4

REPORT INFORMATION
  Report Type: Spontaneous
  Country: JP (occurrence: JP)
  Receive Date: 20211111
  Receipt Date: 20211111
  Transmission Date: 20220303
  Serious: Yes (Hospitalization)
  Sender: FDA-Public Use
  Company Number: JP-GUERBET-JP-20210162

PATIENT
  Sex: Female

DRUGS (1)
  1. OPTIRAY 320 [Suspect]
     Active Substance: IOVERSOL
     Indication: Computerised tomogram
     Route: 042
     Dates: start: 20211026, end: 20211026

REACTIONS (10)
  - Pruritus [Unknown]
  - Erythema [Unknown]
  - Dyspnoea [Unknown]
  - Vomiting [Unknown]
  - Blood pressure decreased [Unknown]
  - Heart rate increased [Unknown]
  - Shock [Unknown]
  - Grunting [Unknown]
  - Abdominal pain [Unknown]
  - Nausea [Unknown]

NARRATIVE: CASE EVENT DATE: 20211026
